FAERS Safety Report 8818656 (Version 1)
Quarter: 2012Q4

REPORT INFORMATION
  Report Type: Spontaneous
  Country: US (occurrence: None)
  Receive Date: 20121002
  Receipt Date: 20121002
  Transmission Date: 20130627
  Serious: Yes (Other)
  Sender: FDA-Public Use
  Company Number: 2012SA069914

PATIENT
  Age: 60 Year
  Sex: Male

DRUGS (1)
  1. ICY HOT [Suspect]
     Indication: DRUG USE FOR UNKNOWN INDICATION
     Route: 061
     Dates: start: 20120818, end: 20120818

REACTIONS (1)
  - Application site burn [None]
